FAERS Safety Report 8402038-6 (Version None)
Quarter: 2012Q2

REPORT INFORMATION
  Report Type: 
  Country: None (occurrence: None)
  Receive Date: 20120601
  Receipt Date: 20120525
  Transmission Date: 20120825
  Serious: Yes (Hospitalization)
  Sender: FDA-Public Use
  Company Number: US-US-EMD SERONO, INC.-7117656

PATIENT
  Sex: Female
  Weight: 55 kg

DRUGS (4)
  1. NUVIGIL [Concomitant]
     Indication: PRODUCT USED FOR UNKNOWN INDICATION
     Route: 048
  2. AMPYRA [Concomitant]
     Indication: PRODUCT USED FOR UNKNOWN INDICATION
     Route: 048
  3. REBIF [Suspect]
     Indication: MULTIPLE SCLEROSIS
     Route: 058
     Dates: start: 20100525
  4. IBUPROFEN [Concomitant]
     Indication: PREMEDICATION

REACTIONS (6)
  - NAUSEA [None]
  - HEADACHE [None]
  - URINARY RETENTION [None]
  - LIMB INJURY [None]
  - ROAD TRAFFIC ACCIDENT [None]
  - SKIN GRAFT [None]
